FAERS Safety Report 8529830-1 (Version None)
Quarter: 2012Q3

REPORT INFORMATION
  Report Type: 
  Country: None (occurrence: None)
  Receive Date: 20120723
  Receipt Date: 20120717
  Transmission Date: 20120928
  Serious: Yes (Hospitalization)
  Sender: FDA-Public Use
  Company Number: US-ASTELLAS-2011US006349

PATIENT
  Age: 62 Year
  Sex: Female
  Weight: 69 kg

DRUGS (6)
  1. ERLOTINIB HYDROCHLORIDE [Suspect]
     Dosage: 75 MG, UID/QD
     Route: 048
     Dates: start: 20111006
  2. GDC-0449 [Suspect]
     Dosage: 150 MG, UID/QD
     Route: 048
     Dates: start: 20111006
  3. ERLOTINIB HYDROCHLORIDE [Suspect]
     Indication: BILE DUCT CANCER
     Dosage: 75 MG, UID/QD
     Route: 048
     Dates: start: 20110722, end: 20110927
  4. GDC-0449 [Suspect]
     Indication: BILE DUCT CANCER
     Dosage: 150 MG, UID/QD
     Route: 048
     Dates: start: 20110722, end: 20110927
  5. GEMCITABINE [Suspect]
     Indication: BILE DUCT CANCER
     Dosage: 600 MG/M2, WEEKLY
     Route: 042
     Dates: start: 20110722, end: 20110923
  6. GEMCITABINE [Suspect]
     Dosage: 600 MG/M2, WEEKLY
     Route: 042
     Dates: start: 20111006

REACTIONS (11)
  - BLOOD BILIRUBIN INCREASED [None]
  - BILE DUCT STENOSIS [None]
  - BILE DUCT OBSTRUCTION [None]
  - ABDOMINAL PAIN [None]
  - DUODENAL STENOSIS [None]
  - ALANINE AMINOTRANSFERASE INCREASED [None]
  - ASPARTATE AMINOTRANSFERASE INCREASED [None]
  - PYREXIA [None]
  - OFF LABEL USE [None]
  - CHOLANGITIS [None]
  - BLOOD ALKALINE PHOSPHATASE INCREASED [None]
